APPROVED DRUG PRODUCT: LORELCO
Active Ingredient: PROBUCOL
Strength: 500MG
Dosage Form/Route: TABLET;ORAL
Application: N017535 | Product #002
Applicant: SANOFI AVENTIS US LLC
Approved: Jul 6, 1988 | RLD: No | RS: No | Type: DISCN